FAERS Safety Report 17863182 (Version 1)
Quarter: 2020Q2

REPORT INFORMATION
  Report Type: Spontaneous
  Country: US (occurrence: US)
  Receive Date: 20200604
  Receipt Date: 20200604
  Transmission Date: 20200714
  Serious: Yes (Other)
  Sender: FDA-Public Use
  Company Number: US-GILEAD-2020-0469222

PATIENT
  Age: 46 Year
  Sex: Female
  Weight: 63.7 kg

DRUGS (18)
  1. ENOXAPARIN [Concomitant]
     Active Substance: ENOXAPARIN
  2. FLUCONAZOLE. [Concomitant]
     Active Substance: FLUCONAZOLE
  3. ASCORBIC ACID. [Concomitant]
     Active Substance: ASCORBIC ACID
  4. BENZONATATE. [Concomitant]
     Active Substance: BENZONATATE
  5. FLUTICASONE. [Concomitant]
     Active Substance: FLUTICASONE
  6. PIPERACILLIN AND TAZOBACTAM [Concomitant]
     Active Substance: PIPERACILLIN SODIUM\TAZOBACTAM SODIUM
  7. LEVOTHYROXINE. [Concomitant]
     Active Substance: LEVOTHYROXINE
  8. ZINC SULFATE. [Concomitant]
     Active Substance: ZINC SULFATE
  9. CODEINE [Concomitant]
     Active Substance: CODEINE
  10. SENNA [SENNA ALEXANDRINA LEAF] [Concomitant]
  11. ACETAMINOPHEN. [Concomitant]
     Active Substance: ACETAMINOPHEN
  12. PROMETHAZINE [Concomitant]
     Active Substance: PROMETHAZINE HYDROCHLORIDE
  13. SODIUM CHLORIDE. [Concomitant]
     Active Substance: SODIUM CHLORIDE
  14. REMDESIVIR. [Suspect]
     Active Substance: REMDESIVIR
     Indication: COVID-19
     Dosage: 200 MG, QD
     Route: 042
     Dates: start: 20200523
  15. VANCOMYCIN [Concomitant]
     Active Substance: VANCOMYCIN
  16. INSULIN LISPRO [Concomitant]
     Active Substance: INSULIN LISPRO
  17. IOPAMIDOL [Concomitant]
     Active Substance: IOPAMIDOL
  18. ONDANSETRON [Concomitant]
     Active Substance: ONDANSETRON

REACTIONS (1)
  - Blood creatinine increased [Unknown]

NARRATIVE: CASE EVENT DATE: 20200524
